FAERS Safety Report 9366683 (Version 1)
Quarter: 2013Q2

REPORT INFORMATION
  Report Type: Spontaneous
  Country: IT (occurrence: IT)
  Receive Date: 20130625
  Receipt Date: 20130625
  Transmission Date: 20140414
  Serious: Yes (Other)
  Sender: FDA-Public Use
  Company Number: IT-ELI_LILLY_AND_COMPANY-IT201306004081

PATIENT
  Sex: Female

DRUGS (2)
  1. ZYPADHERA [Suspect]
     Indication: SCHIZOPHRENIA
     Dosage: 210 MG, 2/M
     Route: 030
  2. DISIPAL [Concomitant]
     Dosage: 50 MG, EACH EVENING

REACTIONS (3)
  - Sedation [Recovered/Resolved]
  - Pulmonary embolism [Unknown]
  - Neutrophil count increased [Unknown]
